FAERS Safety Report 7506396-6 (Version None)
Quarter: 2011Q2

REPORT INFORMATION
  Report Type: 
  Country: None (occurrence: None)
  Receive Date: 20110519
  Receipt Date: 20110427
  Transmission Date: 20111010
  Serious: No
  Sender: FDA-Public Use
  Company Number: 2011-00327

PATIENT
  Age: 76 Year
  Sex: Female
  Weight: 68.0396 kg

DRUGS (6)
  1. NAPROXEN (ALEVE) [Concomitant]
  2. ZICAM ALLERGY RELIEF NASAL GEL [Suspect]
     Dosage: LESS THAN 7 DAYS
     Dates: start: 20110401, end: 20110401
  3. LISINOPRIL [Concomitant]
  4. ASPIRIN [Concomitant]
  5. VERELAN [Concomitant]
  6. SYNTHROID [Concomitant]

REACTIONS (4)
  - ANOSMIA [None]
  - AGEUSIA [None]
  - RHINORRHOEA [None]
  - DIZZINESS [None]
